FAERS Safety Report 25300222 (Version 1)
Quarter: 2025Q2

REPORT INFORMATION
  Report Type: Spontaneous
  Country: US (occurrence: None)
  Receive Date: 20250510
  Receipt Date: 20250510
  Transmission Date: 20250716
  Serious: No
  Sender: FDA-CTU
  Company Number: None

PATIENT
  Age: 59 Year
  Sex: Female
  Weight: 74.25 kg

DRUGS (16)
  1. LEVOFLOXACIN [Suspect]
     Active Substance: LEVOFLOXACIN
     Indication: Pneumonia
     Dosage: OTHER QUANTITY : 7 TABLET(S);?FREQUENCY : DAILY;?
     Route: 048
     Dates: start: 20250503, end: 20250509
  2. MS Continues 15mg [Concomitant]
  3. Tizanidine 4mg prn [Concomitant]
  4. SEROQUEL [Concomitant]
     Active Substance: QUETIAPINE FUMARATE
  5. Seroquel 25mg prn [Concomitant]
  6. Clonazepam .25mg [Concomitant]
  7. PROTONIX [Concomitant]
     Active Substance: PANTOPRAZOLE SODIUM
  8. Zofran 4mg prn [Concomitant]
  9. LIPITOR [Concomitant]
     Active Substance: ATORVASTATIN CALCIUM
  10. LISINOPRIL [Concomitant]
     Active Substance: LISINOPRIL
  11. PLAVIX [Concomitant]
     Active Substance: CLOPIDOGREL BISULFATE
  12. Neurotin 300mg [Concomitant]
  13. Botox injections for TMJ bilateral [Concomitant]
  14. Medtronic Infusion pump with Morphine for back [Concomitant]
  15. MINERALS\VITAMINS [Concomitant]
     Active Substance: MINERALS\VITAMINS
  16. multimineral [Concomitant]

REACTIONS (5)
  - Tendon pain [None]
  - Pain in extremity [None]
  - Gait disturbance [None]
  - Joint swelling [None]
  - Joint noise [None]

NARRATIVE: CASE EVENT DATE: 20250507
